FAERS Safety Report 6058257-X (Version None)
Quarter: 2009Q1

REPORT INFORMATION
  Report Type: 
  Country: None (occurrence: None)
  Receive Date: 20090128
  Receipt Date: 20090128
  Transmission Date: 20090719
  Serious: No
  Sender: FDA-Public Use
  Company Number: None

PATIENT
  Sex: Female
  Weight: 123.3784 kg

DRUGS (5)
  1. MOEXIPRIL HYDROCHLORIDE [Suspect]
     Indication: HYPERTENSION
     Dosage: 15 MG ONCE DAILY PO
     Route: 048
     Dates: end: 20080331
  2. PREMARIN [Concomitant]
  3. TRIAMTERENE AND HYDROCHLOROTHIAZIDE [Concomitant]
  4. GLYBURIDE [Concomitant]
  5. LANTUS [Concomitant]

REACTIONS (2)
  - OEDEMA PERIPHERAL [None]
  - PRODUCT QUALITY ISSUE [None]
